FAERS Safety Report 23390143 (Version 1)
Quarter: 2024Q1

REPORT INFORMATION
  Report Type: Spontaneous
  Country: US (occurrence: US)
  Receive Date: 20240111
  Receipt Date: 20240111
  Transmission Date: 20240410
  Serious: No
  Sender: FDA-Public Use
  Company Number: US-Blueprint Medicines Corporation-1926

PATIENT
  Age: 59 Year
  Sex: Female

DRUGS (91)
  1. AYVAKIT [Suspect]
     Active Substance: AVAPRITINIB
     Indication: Systemic mastocytosis
     Route: 065
     Dates: start: 202311
  2. ESTRADIOL [Concomitant]
     Active Substance: ESTRADIOL
     Indication: Product used for unknown indication
     Route: 065
  3. PROGESTERONE [Concomitant]
     Active Substance: PROGESTERONE
     Indication: Product used for unknown indication
     Route: 048
  4. XOLAIR [Concomitant]
     Active Substance: OMALIZUMAB
     Indication: Product used for unknown indication
     Route: 058
  5. MONTELUKAST SODIUM [Concomitant]
     Active Substance: MONTELUKAST SODIUM
     Indication: Product used for unknown indication
     Route: 048
  6. ERYTHROMYCIN [Concomitant]
     Active Substance: ERYTHROMYCIN
     Indication: Product used for unknown indication
     Route: 065
  7. ERYTHROMYCIN [Concomitant]
     Active Substance: ERYTHROMYCIN
     Route: 065
  8. ERYTHROMYCIN [Concomitant]
     Active Substance: ERYTHROMYCIN
     Route: 065
  9. ERYTHROMYCIN [Concomitant]
     Active Substance: ERYTHROMYCIN
     Route: 065
  10. ATORVASTATIN CALCIUM [Concomitant]
     Active Substance: ATORVASTATIN CALCIUM
     Indication: Product used for unknown indication
     Route: 048
  11. ATORVASTATIN CALCIUM [Concomitant]
     Active Substance: ATORVASTATIN CALCIUM
     Route: 065
  12. ATORVASTATIN CALCIUM [Concomitant]
     Active Substance: ATORVASTATIN CALCIUM
     Route: 065
  13. ATORVASTATIN CALCIUM [Concomitant]
     Active Substance: ATORVASTATIN CALCIUM
     Route: 065
  14. VITAMIN A [Concomitant]
     Active Substance: VITAMIN A
     Indication: Product used for unknown indication
     Route: 065
  15. VITAMIN A [Concomitant]
     Active Substance: VITAMIN A
     Route: 065
  16. VITAMIN A [Concomitant]
     Active Substance: VITAMIN A
     Route: 065
  17. VITAMIN A [Concomitant]
     Active Substance: VITAMIN A
     Route: 065
  18. monolaurin [Concomitant]
     Indication: Product used for unknown indication
     Route: 065
  19. monolaurin [Concomitant]
     Route: 065
  20. monolaurin [Concomitant]
     Route: 065
  21. monolaurin [Concomitant]
     Route: 065
  22. COPPER GLUCONATE [Concomitant]
     Active Substance: COPPER GLUCONATE
     Indication: Product used for unknown indication
     Route: 065
  23. COPPER GLUCONATE [Concomitant]
     Active Substance: COPPER GLUCONATE
     Route: 065
  24. COPPER GLUCONATE [Concomitant]
     Active Substance: COPPER GLUCONATE
     Route: 065
  25. COPPER GLUCONATE [Concomitant]
     Active Substance: COPPER GLUCONATE
     Route: 065
  26. calcium carb- cholecalciferol [Concomitant]
     Indication: Product used for unknown indication
     Route: 048
  27. calcium carb- cholecalciferol [Concomitant]
     Route: 065
  28. calcium carb- cholecalciferol [Concomitant]
     Route: 065
  29. calcium carb- cholecalciferol [Concomitant]
     Route: 065
  30. FERROUS SULFATE [Concomitant]
     Active Substance: FERROUS SULFATE
     Indication: Product used for unknown indication
     Route: 065
  31. FERROUS SULFATE [Concomitant]
     Active Substance: FERROUS SULFATE
     Route: 065
  32. FERROUS SULFATE [Concomitant]
     Active Substance: FERROUS SULFATE
     Route: 065
  33. FERROUS SULFATE [Concomitant]
     Active Substance: FERROUS SULFATE
     Route: 065
  34. ASCORBIC ACID [Concomitant]
     Active Substance: ASCORBIC ACID
     Indication: Product used for unknown indication
     Route: 065
  35. ASCORBIC ACID [Concomitant]
     Active Substance: ASCORBIC ACID
     Route: 065
  36. ASCORBIC ACID [Concomitant]
     Active Substance: ASCORBIC ACID
     Route: 065
  37. ASCORBIC ACID [Concomitant]
     Active Substance: ASCORBIC ACID
     Route: 065
  38. CVS Magnesium oxide [Concomitant]
     Indication: Product used for unknown indication
     Route: 048
  39. CVS Magnesium oxide [Concomitant]
     Route: 065
  40. CVS Magnesium oxide [Concomitant]
     Route: 065
  41. CVS Magnesium oxide [Concomitant]
     Route: 065
  42. QUERCITIN [Concomitant]
     Indication: Product used for unknown indication
     Route: 065
  43. QUERCITIN [Concomitant]
     Route: 065
  44. QUERCITIN [Concomitant]
     Route: 065
  45. QUERCITIN [Concomitant]
     Route: 065
  46. QUERCITIN [Concomitant]
     Route: 065
  47. GLUTATHIONE [Concomitant]
     Active Substance: GLUTATHIONE
     Indication: Product used for unknown indication
     Route: 065
  48. GLUTATHIONE [Concomitant]
     Active Substance: GLUTATHIONE
     Route: 065
  49. GLUTATHIONE [Concomitant]
     Active Substance: GLUTATHIONE
     Route: 065
  50. GLUTATHIONE [Concomitant]
     Active Substance: GLUTATHIONE
     Route: 065
  51. GLUTATHIONE [Concomitant]
     Active Substance: GLUTATHIONE
     Route: 065
  52. EQL Glucosamine Chondroitin [Concomitant]
     Indication: Product used for unknown indication
     Route: 048
  53. EQL Glucosamine Chondroitin [Concomitant]
     Route: 065
  54. EQL Glucosamine Chondroitin [Concomitant]
     Route: 065
  55. EQL Glucosamine Chondroitin [Concomitant]
     Route: 065
  56. EQL Glucosamine Chondroitin [Concomitant]
     Route: 065
  57. VITAMIN K [Concomitant]
     Active Substance: PHYTONADIONE
     Indication: Product used for unknown indication
     Route: 065
  58. VITAMIN K [Concomitant]
     Active Substance: PHYTONADIONE
     Route: 065
  59. VITAMIN K [Concomitant]
     Active Substance: PHYTONADIONE
     Route: 065
  60. VITAMIN K [Concomitant]
     Active Substance: PHYTONADIONE
     Route: 065
  61. VITAMIN K [Concomitant]
     Active Substance: PHYTONADIONE
     Route: 065
  62. CARDITONE [Concomitant]
     Indication: Product used for unknown indication
     Route: 065
  63. CARDITONE [Concomitant]
     Route: 065
  64. CARDITONE [Concomitant]
     Route: 065
  65. CARDITONE [Concomitant]
     Route: 065
  66. CARDITONE [Concomitant]
     Route: 065
  67. PLANT ENZYMES [Concomitant]
     Indication: Product used for unknown indication
     Route: 065
  68. PLANT ENZYMES [Concomitant]
     Route: 065
  69. PLANT ENZYMES [Concomitant]
     Route: 065
  70. PLANT ENZYMES [Concomitant]
     Route: 065
  71. PLANT ENZYMES [Concomitant]
     Route: 065
  72. GLUTATHIONE [Concomitant]
     Active Substance: GLUTATHIONE
     Indication: Product used for unknown indication
     Route: 065
  73. GLUTATHIONE [Concomitant]
     Active Substance: GLUTATHIONE
     Route: 065
  74. GLUTATHIONE [Concomitant]
     Active Substance: GLUTATHIONE
     Route: 065
  75. GLUTATHIONE [Concomitant]
     Active Substance: GLUTATHIONE
     Route: 065
  76. GLUTATHIONE [Concomitant]
     Active Substance: GLUTATHIONE
     Route: 065
  77. ALLEGRA ALLERGY [Concomitant]
     Active Substance: FEXOFENADINE HYDROCHLORIDE
     Indication: Product used for unknown indication
     Route: 048
  78. ALLEGRA ALLERGY [Concomitant]
     Active Substance: FEXOFENADINE HYDROCHLORIDE
     Route: 065
  79. ALLEGRA ALLERGY [Concomitant]
     Active Substance: FEXOFENADINE HYDROCHLORIDE
     Route: 065
  80. ALLEGRA ALLERGY [Concomitant]
     Active Substance: FEXOFENADINE HYDROCHLORIDE
     Route: 065
  81. ALLEGRA ALLERGY [Concomitant]
     Active Substance: FEXOFENADINE HYDROCHLORIDE
     Route: 065
  82. FAMOTIDINE [Concomitant]
     Active Substance: FAMOTIDINE
     Indication: Product used for unknown indication
     Route: 048
  83. FAMOTIDINE [Concomitant]
     Active Substance: FAMOTIDINE
     Route: 065
  84. FAMOTIDINE [Concomitant]
     Active Substance: FAMOTIDINE
     Route: 065
  85. FAMOTIDINE [Concomitant]
     Active Substance: FAMOTIDINE
     Route: 065
  86. FAMOTIDINE [Concomitant]
     Active Substance: FAMOTIDINE
     Route: 065
  87. XIFAXAN [Concomitant]
     Active Substance: RIFAXIMIN
     Indication: Product used for unknown indication
     Route: 048
  88. XIFAXAN [Concomitant]
     Active Substance: RIFAXIMIN
     Route: 065
  89. XIFAXAN [Concomitant]
     Active Substance: RIFAXIMIN
     Route: 065
  90. XIFAXAN [Concomitant]
     Active Substance: RIFAXIMIN
     Route: 065
  91. XIFAXAN [Concomitant]
     Active Substance: RIFAXIMIN
     Route: 065

REACTIONS (1)
  - Product dose omission in error [Unknown]

NARRATIVE: CASE EVENT DATE: 20231201
